FAERS Safety Report 7333871-X (Version None)
Quarter: 2011Q1

REPORT INFORMATION
  Report Type: 
  Country: None (occurrence: None)
  Receive Date: 20110307
  Receipt Date: 20110224
  Transmission Date: 20110831
  Serious: Yes (Hospitalization, Other)
  Sender: FDA-Public Use
  Company Number: US-BIOGENIDEC-2011BI003796

PATIENT
  Age: 40 Year
  Sex: Female

DRUGS (1)
  1. TYSABRI [Suspect]
     Indication: MULTIPLE SCLEROSIS
     Route: 042
     Dates: start: 20101116, end: 20101116

REACTIONS (7)
  - GALLBLADDER DISORDER [None]
  - CONVULSION [None]
  - MALAISE [None]
  - COORDINATION ABNORMAL [None]
  - VISION BLURRED [None]
  - SEPSIS [None]
  - INFECTION [None]
